FAERS Safety Report 11576663 (Version 2)
Quarter: 2015Q4

REPORT INFORMATION
  Report Type: Spontaneous
  Country: JP (occurrence: JP)
  Receive Date: 20150930
  Receipt Date: 20151009
  Transmission Date: 20160304
  Serious: Yes (Death)
  Sender: FDA-Public Use
  Company Number: JP-BAXTER-2015BAX053421

PATIENT
  Sex: Male

DRUGS (1)
  1. DIANEAL [Suspect]
     Active Substance: CALCIUM CHLORIDE\DEXTROSE\MAGNESIUM CHLORIDE\SODIUM CHLORIDE\SODIUM LACTATE
     Indication: NEPHROSCLEROSIS
     Route: 033
     Dates: start: 20130401, end: 20150929

REACTIONS (1)
  - Marasmus [Fatal]

NARRATIVE: CASE EVENT DATE: 20150929
